FAERS Safety Report 4629507-9 (Version None)
Quarter: 2005Q2

REPORT INFORMATION
  Report Type: 
  Country: None (occurrence: None)
  Receive Date: 20050405
  Receipt Date: 20050323
  Transmission Date: 20051028
  Serious: Yes (Hospitalization, Other)
  Sender: FDA-Public Use
  Company Number: 2004093205

PATIENT
  Age: 77 Year
  Sex: Female
  Weight: 58.0604 kg

DRUGS (2)
  1. ZITHROMAX [Suspect]
     Indication: BRONCHITIS
     Dosage: 500 MG (250 MG, 1 IN 1 D), ORAL
     Route: 048
     Dates: start: 20041007, end: 20041007
  2. CANDESARTAN CILEXETIL (CANDESARTAN CILEXETIL) [Concomitant]

REACTIONS (8)
  - CATARACT [None]
  - DIZZINESS [None]
  - EYE DISORDER [None]
  - HYPERSENSITIVITY [None]
  - NIGHTMARE [None]
  - PITUITARY TUMOUR [None]
  - SYNCOPE [None]
  - VISION BLURRED [None]
